FAERS Safety Report 19471368 (Version 1)
Quarter: 2021Q2

REPORT INFORMATION
  Report Type: Spontaneous
  Country: US (occurrence: US)
  Receive Date: 20210629
  Receipt Date: 20210629
  Transmission Date: 20210717
  Serious: No
  Sender: FDA-Public Use
  Company Number: US-Y-MABS THERAPEUTICS-2113243

PATIENT
  Age: 3 Year
  Sex: Male

DRUGS (6)
  1. DANYELZA [Suspect]
     Active Substance: NAXITAMAB-GQGK
     Indication: NEUROBLASTOMA
     Route: 042
     Dates: start: 20210614, end: 20210616
  2. IRINOTECAN HYDROCHLORIDE. [Concomitant]
     Active Substance: IRINOTECAN HYDROCHLORIDE
  3. MORPHINE SULFATE. [Concomitant]
     Active Substance: MORPHINE SULFATE
  4. KETAMINE HYDROCHLORIDE. [Concomitant]
     Active Substance: KETAMINE HYDROCHLORIDE
  5. LEUKINE [Concomitant]
     Active Substance: SARGRAMOSTIM
  6. TEMODAR [Concomitant]
     Active Substance: TEMOZOLOMIDE

REACTIONS (2)
  - Pain [Recovered/Resolved]
  - Pain [Recovering/Resolving]

NARRATIVE: CASE EVENT DATE: 20210616
